FAERS Safety Report 8926346 (Version 4)
Quarter: 2012Q4

REPORT INFORMATION
  Report Type: 
  Country: US (occurrence: US)
  Receive Date: 20121126
  Receipt Date: 20121231
  Transmission Date: 20130627
  Serious: Yes (Other)
  Sender: FDA-Public Use
  Company Number: PHEH2012US022946

PATIENT
  Age: 38 Year
  Sex: Male

DRUGS (5)
  1. GILENYA [Suspect]
     Indication: MULTIPLE SCLEROSIS
     Dosage: 0.5 mg, QD
     Route: 048
     Dates: start: 20121119, end: 20121120
  2. LAMOTRIGINE [Concomitant]
     Dosage: 100 mg, QD
     Route: 048
     Dates: start: 20100112
  3. HYDROCODONE [Concomitant]
     Indication: PAIN
     Dosage: 7.5 mg, TID
     Route: 048
     Dates: start: 20100623
  4. MELOXICAM [Concomitant]
     Indication: PAIN
     Dosage: 7.5 mg, QD
     Route: 048
     Dates: start: 20121010
  5. FLEXERIL [Concomitant]
     Indication: MUSCLE SPASMS
     Dosage: 10 mg, TID
     Route: 048
     Dates: start: 20121030

REACTIONS (3)
  - Arrhythmia [Unknown]
  - Conduction disorder [Unknown]
  - Heart rate decreased [Unknown]
